FAERS Safety Report 12119428 (Version 7)
Quarter: 2017Q2

REPORT INFORMATION
  Report Type: Spontaneous
  Country: US (occurrence: US)
  Receive Date: 20160226
  Receipt Date: 20170407
  Transmission Date: 20170829
  Serious: Yes (Life-Threatening, Congenital Anomaly, Other)
  Sender: FDA-Public Use
  Company Number: PHEH2016US004584

PATIENT
  Sex: Male

DRUGS (3)
  1. ZOFRAN [Suspect]
     Active Substance: ONDANSETRON HYDROCHLORIDE
     Indication: FOETAL EXPOSURE DURING PREGNANCY
     Dosage: MOTHER DOSE: 4 MG AND 8 MG
     Route: 064
  2. ZOFRAN [Suspect]
     Active Substance: ONDANSETRON HYDROCHLORIDE
     Indication: FOETAL EXPOSURE DURING PREGNANCY
     Route: 064
  3. ONDANSETRON HYDROCHLORIDE. [Suspect]
     Active Substance: ONDANSETRON HYDROCHLORIDE
     Indication: FOETAL EXPOSURE DURING PREGNANCY
     Dosage: MOTHER DOSE: 8 MG AND 4 MG
     Route: 064

REACTIONS (38)
  - Congenital anomaly [Unknown]
  - Right atrial enlargement [Unknown]
  - Pain [Unknown]
  - Cardiomegaly [Unknown]
  - Hypoplastic right heart syndrome [Unknown]
  - Foetal cardiac disorder [Unknown]
  - Neonatal respiratory failure [Unknown]
  - Developmental delay [Unknown]
  - Anhedonia [Unknown]
  - Tremor neonatal [Unknown]
  - Atrial septal defect [Unknown]
  - Congenital pulmonary artery anomaly [Unknown]
  - Cyanosis neonatal [Unknown]
  - Sepsis neonatal [Unknown]
  - Emotional distress [Unknown]
  - Fall [Unknown]
  - Dyspnoea [Unknown]
  - Heart disease congenital [Unknown]
  - Right ventricular enlargement [Unknown]
  - Pericardial effusion [Unknown]
  - Metabolic acidosis [Unknown]
  - Patent ductus arteriosus [Unknown]
  - Tricuspid valve incompetence [Unknown]
  - Visual impairment [Unknown]
  - Congenital pulmonary valve atresia [Unknown]
  - Neonatal hypotension [Unknown]
  - Pneumonia [Unknown]
  - Speech disorder [Unknown]
  - Right-to-left cardiac shunt [Unknown]
  - Ventricular hypoplasia [Unknown]
  - Laevocardia [Unknown]
  - Foetal exposure during pregnancy [Unknown]
  - Injury [Unknown]
  - Anxiety [Unknown]
  - Pulmonary valve stenosis congenital [Unknown]
  - Congenital tricuspid valve atresia [Unknown]
  - Right ventricular hypertrophy [Unknown]
  - Pulmonary vascular disorder [Unknown]
